FAERS Safety Report 21237505 (Version 2)
Quarter: 2024Q1

REPORT INFORMATION
  Report Type: Spontaneous
  Country: TN (occurrence: TN)
  Receive Date: 20220822
  Receipt Date: 20240109
  Transmission Date: 20240410
  Serious: Yes (Hospitalization)
  Sender: FDA-Public Use
  Company Number: TN-STRIDES ARCOLAB LIMITED-2022SP010517

PATIENT
  Age: 17 Year
  Sex: Female

DRUGS (9)
  1. DEXAMETHASONE [Suspect]
     Active Substance: DEXAMETHASONE
     Indication: B precursor type acute leukaemia
     Dosage: 6 MILLIGRAM/SQ. METER PER DAY (SCHEDULED TO RECEIVE INDUCTION THERAPY ON DAY1-28)
     Route: 065
  2. METHOTREXATE [Suspect]
     Active Substance: METHOTREXATE
     Indication: B precursor type acute leukaemia
     Dosage: 5 G/M2 INDUCTION THERAPY (ADMINISTERED OVER 24H) (INFUSION)
     Route: 042
  3. METHOTREXATE [Suspect]
     Active Substance: METHOTREXATE
     Dosage: UNK
     Route: 037
  4. METHOTREXATE [Suspect]
     Active Substance: METHOTREXATE
     Dosage: UNK (INFUSION)
     Route: 042
  5. VINCRISTINE [Suspect]
     Active Substance: VINCRISTINE
     Indication: B precursor type acute leukaemia
     Dosage: 1.5 MILLIGRAM/SQ. METER (INDUCTION THERAPY)
     Route: 065
  6. SODIUM BICARBONATE [Concomitant]
     Active Substance: SODIUM BICARBONATE
     Indication: Drug therapy
     Dosage: 1 L/M2
     Route: 042
  7. SODIUM CHLORIDE [Concomitant]
     Active Substance: SODIUM CHLORIDE
     Indication: Drug therapy
     Dosage: 1.5 M2/L
     Route: 042
  8. LEUCOVORIN [Concomitant]
     Active Substance: LEUCOVORIN\LEUCOVORIN CALCIUM
     Indication: Drug therapy
     Dosage: 25 MILLIGRAM/SQ. METER (AT 36H AFTER METHOTREXATE ADMINISTRATION)
     Route: 065
  9. LEUCOVORIN [Concomitant]
     Active Substance: LEUCOVORIN\LEUCOVORIN CALCIUM
     Dosage: 50 MILLIGRAM/SQ. METER, UNKNOWN
     Route: 065

REACTIONS (3)
  - Haematotoxicity [Recovered/Resolved]
  - Renal impairment [Recovered/Resolved]
  - Hypersensitivity pneumonitis [Recovered/Resolved]
